FAERS Safety Report 7934789-1 (Version None)
Quarter: 2011Q4

REPORT INFORMATION
  Report Type: 
  Country: None (occurrence: None)
  Receive Date: 20111116
  Receipt Date: 20111027
  Transmission Date: 20120403
  Serious: Yes (Hospitalization)
  Sender: FDA-Public Use
  Company Number: 2011SP046152

PATIENT
  Age: 51 Year
  Sex: Female
  Weight: 49.4 kg

DRUGS (30)
  1. PRIMPERAN TAB [Concomitant]
  2. PEGINTERFERON ALFA-2B [Suspect]
     Indication: HEPATITIS C
     Dosage: 300 MG; BID;UNK
     Dates: start: 20110928, end: 20111012
  3. PEGINTERFERON ALFA-2B [Suspect]
     Indication: HEPATITIS C
     Dosage: 300 MG; BID;UNK
     Dates: start: 20110915, end: 20110927
  4. PEGINTERFERON ALFA-2B [Suspect]
     Indication: HEPATITIS C
     Dosage: 300 MG; BID;UNK
     Dates: start: 20110915, end: 20110928
  5. PEGINTERFERON ALFA-2B [Suspect]
     Indication: HEPATITIS C
     Dosage: 300 MG; BID;UNK
     Dates: start: 20110929, end: 20111013
  6. ACETAMINOPHEN [Concomitant]
  7. SELBEX [Concomitant]
  8. POTASSIUM CHLORIDE [Concomitant]
  9. ENSURE [Concomitant]
  10. AMLODIPINE BESYLATE [Concomitant]
  11. FAMOTIDINE [Concomitant]
  12. PEG-INTRON [Suspect]
     Indication: HEPATITIS C
     Dosage: 80 MCG;QW;UNK; 80 MCG;QW/UNK
     Dates: start: 20110915, end: 20110915
  13. PEG-INTRON [Suspect]
     Indication: HEPATITIS C
     Dosage: 80 MCG;QW;UNK; 80 MCG;QW/UNK
     Dates: start: 20111006, end: 20111006
  14. PEG-INTRON [Suspect]
     Indication: HEPATITIS C
     Dosage: 80 MCG;QW;UNK; 80 MCG;QW/UNK
     Dates: start: 20110922, end: 20110922
  15. PEG-INTRON [Suspect]
     Indication: HEPATITIS C
     Dosage: 80 MCG;QW;UNK; 80 MCG;QW/UNK
     Dates: start: 20110928, end: 20110928
  16. RIBAVIRIN [Suspect]
     Indication: HEPATITIS C
     Dosage: 300 MG;BID;UNK
     Dates: start: 20110917, end: 20110917
  17. RIBAVIRIN [Suspect]
     Indication: HEPATITIS C
     Dosage: 300 MG;BID;UNK
     Dates: start: 20110918, end: 20110918
  18. RIBAVIRIN [Suspect]
     Indication: HEPATITIS C
     Dosage: 300 MG;BID;UNK
     Dates: start: 20110921, end: 20110927
  19. RIBAVIRIN [Suspect]
     Indication: HEPATITIS C
     Dosage: 300 MG;BID;UNK
     Dates: start: 20110928, end: 20111005
  20. RIBAVIRIN [Suspect]
     Indication: HEPATITIS C
     Dosage: 300 MG;BID;UNK
     Dates: start: 20110920, end: 20110920
  21. RIBAVIRIN [Suspect]
     Indication: HEPATITIS C
     Dosage: 300 MG;BID;UNK
     Dates: start: 20110929, end: 20111006
  22. RIBAVIRIN [Suspect]
     Indication: HEPATITIS C
     Dosage: 300 MG;BID;UNK
     Dates: start: 20110922, end: 20110928
  23. RIBAVIRIN [Suspect]
     Indication: HEPATITIS C
     Dosage: 300 MG;BID;UNK
     Dates: start: 20110915, end: 20110915
  24. RIBAVIRIN [Suspect]
     Indication: HEPATITIS C
     Dosage: 300 MG;BID;UNK
     Dates: start: 20110919, end: 20110919
  25. RIBAVIRIN [Suspect]
     Indication: HEPATITIS C
     Dosage: 300 MG;BID;UNK
     Dates: start: 20111007, end: 20111013
  26. RIBAVIRIN [Suspect]
     Indication: HEPATITIS C
     Dosage: 300 MG;BID;UNK
     Dates: start: 20110916, end: 20110916
  27. RIBAVIRIN [Suspect]
     Indication: HEPATITIS C
     Dosage: 300 MG;BID;UNK
     Dates: start: 20110921, end: 20110921
  28. RIBAVIRIN [Suspect]
     Indication: HEPATITIS C
     Dosage: 300 MG;BID;UNK
     Dates: start: 20111006, end: 20111012
  29. MIYA-BM [Concomitant]
  30. ADOFEED [Concomitant]

REACTIONS (6)
  - HYPONATRAEMIA [None]
  - INAPPROPRIATE ANTIDIURETIC HORMONE SECRETION [None]
  - DIARRHOEA [None]
  - NAUSEA [None]
  - DECREASED APPETITE [None]
  - VOMITING [None]
